FAERS Safety Report 4344357-9 (Version None)
Quarter: 2004Q2

REPORT INFORMATION
  Report Type: 
  Country: None (occurrence: None)
  Receive Date: 20040420
  Receipt Date: 20040409
  Transmission Date: 20050107
  Serious: Yes (Life-Threatening, Hospitalization)
  Sender: FDA-Public Use
  Company Number: 2004206127JP

PATIENT
  Age: 71 Year
  Sex: Female
  Weight: 41 kg

DRUGS (7)
  1. AZULFIDINE EN-TABS [Suspect]
     Indication: RHEUMATOID ARTHRITIS
     Dosage: 1000 MG, BID, ORAL
     Route: 048
     Dates: start: 20040201, end: 20040324
  2. LOXONIN (LOXOPROFEN SODIUM) TABLET [Suspect]
     Indication: RHEUMATOID ARTHRITIS
     Dosage: 180 MG/DAY, ORAL
     Route: 048
     Dates: end: 20040324
  3. PREDONINE [Concomitant]
  4. MARZULENE S (SODIUM GUALENATE) [Concomitant]
  5. BLOPRESS (CANDESARTAN CILEXETIL) [Concomitant]
  6. TRICHLORMETHIAZIDE [Concomitant]
  7. LOSARTAN POTASSIUM [Concomitant]

REACTIONS (2)
  - CONJUNCTIVAL HYPERAEMIA [None]
  - RASH GENERALISED [None]
